FAERS Safety Report 10176386 (Version 3)
Quarter: 2015Q2

REPORT INFORMATION
  Report Type: Spontaneous
  Country: US (occurrence: US)
  Receive Date: 20140516
  Receipt Date: 20150610
  Transmission Date: 20150821
  Serious: Yes (Other)
  Sender: FDA-Public Use
  Company Number: PHHY2014US058943

PATIENT
  Sex: Female

DRUGS (5)
  1. METFORMIN [Suspect]
     Active Substance: METFORMIN HYDROCHLORIDE
     Dosage: UNK UKN, UNK
  2. MORPHINE [Suspect]
     Active Substance: MORPHINE
     Dosage: 3.844 MG, PER DAY
     Route: 037
     Dates: end: 20140505
  3. BACLOFEN INTRATHECAL [Suspect]
     Active Substance: BACLOFEN
     Indication: PAIN
     Dosage: 7.21 UG, PER DAY
     Route: 037
     Dates: end: 20140505
  4. FENTANYL. [Suspect]
     Active Substance: FENTANYL
     Dosage: UNK UKN, UNK
     Route: 037
     Dates: end: 20140304
  5. CLONIDINE. [Suspect]
     Active Substance: CLONIDINE
     Dosage: 8.65 UG,PER DAY
     Route: 037
     Dates: end: 20140505

REACTIONS (12)
  - Spinal pain [Unknown]
  - Renal failure [Unknown]
  - Hallucination [Unknown]
  - Loss of consciousness [Unknown]
  - Spinal fracture [Unknown]
  - Cardiac failure congestive [Unknown]
  - Cognitive disorder [Unknown]
  - Malnutrition [Unknown]
  - Blood glucose abnormal [Unknown]
  - Chronic obstructive pulmonary disease [Unknown]
  - Muscle tightness [Unknown]
  - Dehydration [Unknown]
